FAERS Safety Report 24618411 (Version 1)
Quarter: 2024Q4

REPORT INFORMATION
  Report Type: Spontaneous
  Country: US (occurrence: US)
  Receive Date: 20241114
  Receipt Date: 20241114
  Transmission Date: 20250115
  Serious: Yes (Hospitalization, Disabling)
  Sender: MYLAN
  Company Number: US-MYLANLABS-2024M1102366

PATIENT
  Age: 71 Year
  Sex: Female

DRUGS (11)
  1. PREDNISOLONE [Suspect]
     Active Substance: PREDNISOLONE
     Indication: Scedosporium infection
     Dosage: UNK
     Route: 061
  2. PREDNISOLONE [Suspect]
     Active Substance: PREDNISOLONE
     Indication: Eye infection fungal
  3. INDOMETHACIN [Suspect]
     Active Substance: INDOMETHACIN
     Indication: Scedosporium infection
     Dosage: UNK
     Route: 048
  4. INDOMETHACIN [Suspect]
     Active Substance: INDOMETHACIN
     Indication: Eye infection fungal
  5. VORICONAZOLE [Suspect]
     Active Substance: VORICONAZOLE
     Indication: Scedosporium infection
     Dosage: 200 MILLIGRAM, BID
     Route: 048
  6. VORICONAZOLE [Suspect]
     Active Substance: VORICONAZOLE
     Indication: Eye infection fungal
  7. NATAMYCIN [Suspect]
     Active Substance: NATAMYCIN
     Indication: Scedosporium infection
     Dosage: UNK, QH
     Route: 061
  8. NATAMYCIN [Suspect]
     Active Substance: NATAMYCIN
     Indication: Eye infection fungal
  9. AMPHOTERICIN B [Suspect]
     Active Substance: AMPHOTERICIN B
     Indication: Scedosporium infection
     Dosage: UNK
     Route: 031
  10. AMPHOTERICIN B [Suspect]
     Active Substance: AMPHOTERICIN B
     Indication: Eye infection fungal
  11. MOXIFLOXACIN [Concomitant]
     Active Substance: MOXIFLOXACIN
     Indication: Evidence based treatment
     Dosage: UNK
     Route: 061

REACTIONS (1)
  - Drug ineffective [Unknown]
